FAERS Safety Report 5728169-7 (Version None)
Quarter: 2008Q2

REPORT INFORMATION
  Report Type: 
  Country: None (occurrence: None)
  Receive Date: 20080430
  Receipt Date: 20080417
  Transmission Date: 20081010
  Serious: Yes (Hospitalization)
  Sender: FDA-Public Use
  Company Number: 026953

PATIENT
  Age: 34 Year
  Sex: Female

DRUGS (5)
  1. WARFARIN SODIUM [Suspect]
     Indication: PULMONARY EMBOLISM
     Dosage: 3 MG
  2. RISPERDAL [Suspect]
  3. LEVOFLOXACIN [Suspect]
     Indication: URINARY TRACT INFECTION
  4. ENOXAPARIN SODIUM [Suspect]
  5. HALOPERIDOL [Suspect]

REACTIONS (3)
  - DRUG INTERACTION [None]
  - NEUROLEPTIC MALIGNANT SYNDROME [None]
  - RETROPERITONEAL HAEMATOMA [None]
